FAERS Safety Report 6818960-8 (Version None)
Quarter: 2010Q3

REPORT INFORMATION
  Report Type: 
  Country: None (occurrence: None)
  Receive Date: 20100707
  Receipt Date: 20100702
  Transmission Date: 20110219
  Serious: Yes (Other)
  Sender: FDA-Public Use
  Company Number: US-ASTRAZENECA-2007UW01564

PATIENT
  Age: 706 Month
  Sex: Female
  Weight: 44.5 kg

DRUGS (4)
  1. SEROQUEL [Suspect]
     Indication: NERVOUSNESS
     Route: 048
     Dates: start: 19980101, end: 20061201
  2. SEROQUEL [Suspect]
     Indication: SLEEP DISORDER
     Route: 048
     Dates: start: 19980101, end: 20061201
  3. ZYPREXA [Suspect]
     Indication: ANXIETY
     Dosage: 5 TO 10 MG
     Dates: start: 19970301, end: 20040201
  4. RISPERDAL [Suspect]
     Indication: SLEEP DISORDER
     Dosage: 1 TO 2 MG
     Dates: start: 19980101

REACTIONS (2)
  - NEUROPATHY PERIPHERAL [None]
  - TYPE 2 DIABETES MELLITUS [None]
